FAERS Safety Report 13254157 (Version 1)
Quarter: 2017Q1

REPORT INFORMATION
  Report Type: Spontaneous
  Country: US (occurrence: US)
  Receive Date: 20170221
  Receipt Date: 20170221
  Transmission Date: 20170428
  Serious: No
  Sender: FDA-Public Use
  Company Number: US-ASTRAZENECA-2017SE16370

PATIENT

DRUGS (3)
  1. FARXIGA [Suspect]
     Active Substance: DAPAGLIFLOZIN PROPANEDIOL
     Indication: TYPE 2 DIABETES MELLITUS
     Route: 048
  2. INVOKANA [Concomitant]
     Active Substance: CANAGLIFLOZIN
  3. JUNAMET [Concomitant]
     Indication: DIABETES MELLITUS

REACTIONS (1)
  - Blood glucose increased [Recovered/Resolved]
